FAERS Safety Report 9256663 (Version 3)
Quarter: 2014Q1

REPORT INFORMATION
  Report Type: Spontaneous
  Country: US (occurrence: US)
  Receive Date: 20130426
  Receipt Date: 20140107
  Transmission Date: 20141002
  Serious: Yes (Hospitalization, Disabling, Other)
  Sender: FDA-Public Use
  Company Number: US-ASTRAZENECA-2013SE27701

PATIENT
  Age: 618 Month
  Sex: Female
  Weight: 77.1 kg

DRUGS (17)
  1. NEXIUM [Suspect]
     Indication: ULCER
     Route: 048
     Dates: start: 2006
  2. NEXIUM [Suspect]
     Indication: GASTROOESOPHAGEAL REFLUX DISEASE
     Route: 048
     Dates: start: 2006
  3. NEXIUM [Suspect]
     Indication: ULCER
     Route: 048
     Dates: start: 20060517
  4. NEXIUM [Suspect]
     Indication: GASTROOESOPHAGEAL REFLUX DISEASE
     Route: 048
     Dates: start: 20060517
  5. PAXIL [Concomitant]
     Indication: NERVOUSNESS
  6. DIAZEPAM [Concomitant]
     Indication: NERVOUSNESS
  7. VITAMIN-D2 [Concomitant]
     Indication: BONE DISORDER
  8. VITAMIN-D2 [Concomitant]
     Indication: OSTEOPOROSIS
  9. CALCIUM [Concomitant]
     Indication: OSTEOPOROSIS
  10. MAGNESIUM [Concomitant]
     Indication: OSTEOPOROSIS
  11. GABAPENTIN [Concomitant]
     Indication: BACK PAIN
  12. NORTRIPTYLINE [Concomitant]
  13. OXYCODONE [Concomitant]
     Indication: BACK PAIN
  14. FENTANYL [Concomitant]
     Indication: BACK PAIN
  15. CARISOPRODOL [Concomitant]
     Dates: start: 20061120
  16. NAPROXEN [Concomitant]
     Dates: start: 20070604
  17. TIZANIDINE HCL [Concomitant]
     Dates: start: 20040315

REACTIONS (17)
  - Cervical vertebral fracture [Unknown]
  - Intervertebral disc degeneration [Unknown]
  - Intervertebral disc protrusion [Unknown]
  - Osteoporosis [Unknown]
  - Convulsion [Unknown]
  - Bone density decreased [Unknown]
  - Wrist fracture [Unknown]
  - Radius fracture [Unknown]
  - Ankle fracture [Unknown]
  - Arthritis [Unknown]
  - Anorexia nervosa [Unknown]
  - Bone disorder [Unknown]
  - Calcium deficiency [Unknown]
  - Joint injury [Unknown]
  - Vitamin D deficiency [Unknown]
  - Fall [Unknown]
  - Depression [Unknown]
